FAERS Safety Report 24310479 (Version 1)
Quarter: 2024Q3

REPORT INFORMATION
  Report Type: Spontaneous
  Country: FR (occurrence: FR)
  Receive Date: 20240912
  Receipt Date: 20240912
  Transmission Date: 20241016
  Serious: Yes (Death, Other)
  Sender: AUROBINDO
  Company Number: FR-AFSSAPS-DJ2024000934

PATIENT
  Age: 51 Year
  Sex: Male
  Weight: 65 kg

DRUGS (5)
  1. ARIPIPRAZOLE [Suspect]
     Active Substance: ARIPIPRAZOLE
     Indication: Schizophrenia
     Dosage: 15 MILLIGRAM, ONCE A DAY
     Route: 048
     Dates: start: 20240502, end: 20240528
  2. LOXAPINE [Suspect]
     Active Substance: LOXAPINE
     Indication: Schizophrenia
     Dosage: 250 MILLIGRAM, ONCE A DAY
     Route: 048
     Dates: end: 20240528
  3. VENLAFAXINE [Suspect]
     Active Substance: VENLAFAXINE HYDROCHLORIDE
     Indication: Schizophrenia
     Dosage: 75 MILLIGRAM, ONCE A DAY
     Route: 048
     Dates: start: 20240510, end: 20240529
  4. ATROPINE [Suspect]
     Active Substance: ATROPINE
     Indication: Salivary hypersecretion
     Dosage: UNK
     Route: 065
     Dates: start: 20240510, end: 20240529
  5. CLOZAPINE [Suspect]
     Active Substance: CLOZAPINE
     Indication: Schizophrenia
     Dosage: 975 MILLIGRAM, ONCE A DAY
     Route: 048
     Dates: end: 20240528

REACTIONS (2)
  - Intestinal pseudo-obstruction [Fatal]
  - Tonic clonic movements [Fatal]

NARRATIVE: CASE EVENT DATE: 20240528
